FAERS Safety Report 4741383-2 (Version None)
Quarter: 2005Q3

REPORT INFORMATION
  Report Type: 
  Country: None (occurrence: None)
  Receive Date: 20050808
  Receipt Date: 20050726
  Transmission Date: 20060218
  Serious: Yes (Hospitalization, Other)
  Sender: FDA-Public Use
  Company Number: 2005036298

PATIENT
  Age: 81 Year
  Sex: Female
  Weight: 90.7194 kg

DRUGS (5)
  1. DETROL LA [Suspect]
     Indication: HYPERTONIC BLADDER
     Dosage: 4 MG (4 MG, 1 IN 1 D), ORAL
     Route: 048
  2. LASIX [Concomitant]
  3. ZOCOR [Concomitant]
  4. POTASSIUM CHLORIDE [Concomitant]
  5. NORVASC [Concomitant]

REACTIONS (7)
  - ABDOMINAL PAIN [None]
  - DRUG INEFFECTIVE [None]
  - GALLBLADDER CANCER [None]
  - GASTRIC DISORDER [None]
  - MEMORY IMPAIRMENT [None]
  - NEOPLASM MALIGNANT [None]
  - NOCTURIA [None]
